FAERS Safety Report 18162320 (Version 2)
Quarter: 2020Q3

REPORT INFORMATION
  Report Type: Spontaneous
  Country: GB (occurrence: GB)
  Receive Date: 20200818
  Receipt Date: 20200821
  Transmission Date: 20201103
  Serious: Yes (Death, Life-Threatening, Hospitalization, Other)
  Sender: FDA-Public Use
  Company Number: GB-ACCORD-195679

PATIENT
  Age: 63 Year
  Sex: Male
  Weight: 53.3 kg

DRUGS (1)
  1. METHOTREXATE. [Suspect]
     Active Substance: METHOTREXATE
     Indication: RHEUMATOID ARTHRITIS
     Route: 048
     Dates: start: 2017, end: 2019

REACTIONS (7)
  - Influenza [Fatal]
  - Bronchopulmonary aspergillosis [Fatal]
  - Klebsiella infection [Fatal]
  - Respiratory failure [Fatal]
  - Hydrocephalus [Fatal]
  - Aspergilloma [Fatal]
  - CNS ventriculitis [Fatal]

NARRATIVE: CASE EVENT DATE: 20190125
